FAERS Safety Report 11719885 (Version 1)
Quarter: 2015Q4

REPORT INFORMATION
  Report Type: Report from Study
  Country: ES (occurrence: ES)
  Receive Date: 20151110
  Receipt Date: 20151110
  Transmission Date: 20160304
  Serious: Yes (Other)
  Sender: FDA-Public Use
  Company Number: ES-ROCHE-1655766

PATIENT

DRUGS (5)
  1. LIPOSOMAL CYTARABINE [Suspect]
     Active Substance: CYTARABINE
     Indication: METASTASES TO MENINGES
     Route: 037
  2. METHOTREXATE [Suspect]
     Active Substance: METHOTREXATE
     Indication: METASTASES TO MENINGES
     Route: 037
  3. CYTARABINE. [Suspect]
     Active Substance: CYTARABINE
     Indication: METASTASES TO MENINGES
     Route: 037
  4. HYDROCORTISONE. [Suspect]
     Active Substance: HYDROCORTISONE
     Indication: METASTASES TO MENINGES
     Route: 037
  5. TRASTUZUMAB [Suspect]
     Active Substance: TRASTUZUMAB
     Indication: METASTASES TO MENINGES
     Route: 037

REACTIONS (15)
  - CNS ventriculitis [Unknown]
  - Leukoencephalopathy [Unknown]
  - Brain stem syndrome [Unknown]
  - Meningitis [Unknown]
  - Headache [Unknown]
  - Arachnoiditis [Unknown]
  - Migraine [Unknown]
  - Presyncope [Unknown]
  - Retinal haemorrhage [Unknown]
  - Meningitis chemical [Unknown]
  - Subdural hygroma [Unknown]
  - Vertigo [Unknown]
  - Intracranial pressure increased [Unknown]
  - Myelopathy [Unknown]
  - Radiculopathy [Unknown]
